FAERS Safety Report 6086619-3 (Version None)
Quarter: 2009Q1

REPORT INFORMATION
  Report Type: 
  Country: None (occurrence: None)
  Receive Date: 20090223
  Receipt Date: 20090203
  Transmission Date: 20090719
  Serious: Yes (Other)
  Sender: FDA-Public Use
  Company Number: BR-PFIZER INC-2008152951

PATIENT

DRUGS (1)
  1. ALPRAZOLAM [Suspect]
     Indication: PANIC DISORDER
     Dosage: UNK
     Route: 048

REACTIONS (3)
  - AGITATION [None]
  - FORMICATION [None]
  - NERVOUSNESS [None]
